FAERS Safety Report 19410445 (Version 1)
Quarter: 2021Q2

REPORT INFORMATION
  Report Type: Spontaneous
  Country: US (occurrence: US)
  Receive Date: 20210612
  Receipt Date: 20210612
  Transmission Date: 20210717
  Serious: Yes (Disabling)
  Sender: FDA-Public Use
  Company Number: None

PATIENT
  Age: 47 Year
  Sex: Male
  Weight: 105.75 kg

DRUGS (12)
  1. PAMELOR [Concomitant]
     Active Substance: NORTRIPTYLINE HYDROCHLORIDE
  2. OXYGEN THERAPY [Concomitant]
     Active Substance: OXYGEN
  3. GABAPENTIN. [Concomitant]
     Active Substance: GABAPENTIN
  4. NASONEX [Concomitant]
     Active Substance: MOMETASONE FUROATE
  5. CHLOR?TRIMATON [Concomitant]
  6. NUVIGIL [Concomitant]
     Active Substance: ARMODAFINIL
  7. CIPROFLOXACIN HCL 500 MG [Suspect]
     Active Substance: CIPROFLOXACIN HYDROCHLORIDE
     Indication: PSEUDOMONAS INFECTION
     Dosage: ?          QUANTITY:1 TABLET(S);?
     Route: 048
     Dates: start: 20210218, end: 20210318
  8. TRAMADOL. [Concomitant]
     Active Substance: TRAMADOL
  9. MUCINEX [Concomitant]
     Active Substance: GUAIFENESIN
  10. NAPROXEN. [Concomitant]
     Active Substance: NAPROXEN
  11. SALINE ALKAKOL WASH [Concomitant]
  12. VALACYCLOVIR [Concomitant]
     Active Substance: VALACYCLOVIR HYDROCHLORIDE

REACTIONS (13)
  - Scar [None]
  - Joint swelling [None]
  - Tendon rupture [None]
  - Neuralgia [None]
  - Infection [None]
  - Myalgia [None]
  - Tendonitis [None]
  - Postoperative wound complication [None]
  - Skin mass [None]
  - Arthralgia [None]
  - Tendon pain [None]
  - Ligament sprain [None]
  - Contusion [None]

NARRATIVE: CASE EVENT DATE: 20210309
